FAERS Safety Report 7898979-9 (Version None)
Quarter: 2011Q4

REPORT INFORMATION
  Report Type: 
  Country: None (occurrence: None)
  Receive Date: 20111107
  Receipt Date: 20111021
  Transmission Date: 20120403
  Serious: Yes (Hospitalization, Other)
  Sender: FDA-Public Use
  Company Number: PHHY2011JP91585

PATIENT
  Age: 43 Year
  Sex: Female

DRUGS (13)
  1. ANTIFUNGAL DRUGS [Concomitant]
     Dosage: UNK UKN, UNK
  2. CYCLOSPORINE [Suspect]
     Indication: RENAL TRANSPLANT
     Dosage: UNK UKN, UNK
  3. METHYLPREDNISOLONE [Concomitant]
     Dosage: 4 MG, UNK
  4. DEOXYSPERGUALIN [Concomitant]
  5. PROGRAF [Concomitant]
     Dosage: 6 MG, UNK
  6. POLYGAM S/D [Concomitant]
     Dosage: UNK UKN, UNK
     Route: 042
  7. ACYCLOVIR [Concomitant]
     Dosage: UNK UKN, UNK
     Route: 048
  8. BASILIXIMAB [Suspect]
     Indication: RENAL TRANSPLANT
     Dosage: UNK UKN, UNK
     Route: 042
  9. MYCOPHENOLATE MOFETIL [Concomitant]
     Dosage: 1000 MG, UNK
  10. GANCICLOVIR [Concomitant]
     Dosage: UNK UKN, UNK
  11. STEROIDS NOS [Concomitant]
     Dosage: UNK UKN, UNK
  12. VIDARABINE [Concomitant]
     Dosage: UNK UKN, UNK
  13. GLYCYRRHIZINATE POTASSIUM [Concomitant]
     Dosage: UNK UKN, UNK

REACTIONS (14)
  - ASPARTATE AMINOTRANSFERASE INCREASED [None]
  - KIDNEY TRANSPLANT REJECTION [None]
  - DISSEMINATED INTRAVASCULAR COAGULATION [None]
  - VARICELLA [None]
  - BACK PAIN [None]
  - RASH [None]
  - HEPATIC INFECTION [None]
  - NASOPHARYNGITIS [None]
  - ALANINE AMINOTRANSFERASE INCREASED [None]
  - PNEUMONIA HERPES VIRAL [None]
  - PYREXIA [None]
  - OXYGEN SATURATION DECREASED [None]
  - SCAB [None]
  - HERPES ZOSTER [None]
